FAERS Safety Report 4718939-6 (Version None)
Quarter: 2005Q3

REPORT INFORMATION
  Report Type: 
  Country: None (occurrence: None)
  Receive Date: 20050719
  Receipt Date: 20050706
  Transmission Date: 20060218
  Serious: Yes (Hospitalization)
  Sender: FDA-Public Use
  Company Number: 2005-02336

PATIENT
  Age: 49 Year
  Sex: Female

DRUGS (10)
  1. FLUOXETINE (WATSON LABORATORIES) (FLUOXETINE) CAPSULE, 10MG [Suspect]
     Dosage: 10 MG, DAILY,
  2. LEVOFLOXACIN [Suspect]
     Indication: PYELONEPHRITIS
     Dosage: 500 MG, DAILY,
  3. IMIPRAMINE [Suspect]
     Dosage: 50 MG, QHS,
  4. GABAPENTIN [Concomitant]
  5. PROPRANOLOL [Concomitant]
  6. CARISOPRODOL [Concomitant]
  7. MIRTAZAPINE [Concomitant]
  8. LORATADINE [Concomitant]
  9. PSEUDOEPHEDRINE HCL [Concomitant]
  10. FERROUS SULFATE TAB [Concomitant]

REACTIONS (2)
  - DRUG INTERACTION POTENTIATION [None]
  - ELECTROCARDIOGRAM QT CORRECTED INTERVAL PROLONGED [None]
